FAERS Safety Report 4525459-0 (Version None)
Quarter: 2004Q4

REPORT INFORMATION
  Report Type: 
  Country: None (occurrence: None)
  Receive Date: 20041116
  Receipt Date: 20040809
  Transmission Date: 20050328
  Serious: No
  Sender: FDA-Public Use
  Company Number: S04-USA-05813-01

PATIENT
  Age: 89 Year
  Sex: Female

DRUGS (7)
  1. NAMENDA [Suspect]
     Dosage: 5 MG QD PO
     Route: 048
     Dates: start: 20040701, end: 20040701
  2. NAMENDA [Suspect]
     Dosage: 5 MG BID PO
     Route: 048
     Dates: start: 20040701, end: 20040101
  3. NAMENDA [Suspect]
     Dosage: 10 MG QAM PO
     Route: 048
     Dates: start: 20040101, end: 20040806
  4. NAMENDA [Suspect]
     Dosage: 5 MG QHS PO
     Route: 048
     Dates: start: 20040101, end: 20040806
  5. ARICEPT [Concomitant]
  6. HIGH B/P MEDICATION [Concomitant]
  7. FERROUS SULFATE TAB [Concomitant]

REACTIONS (2)
  - DIZZINESS [None]
  - TREMOR [None]
